FAERS Safety Report 6288788-9 (Version None)
Quarter: 2009Q3

REPORT INFORMATION
  Report Type: 
  Country: None (occurrence: None)
  Receive Date: 20090727
  Receipt Date: 20090709
  Transmission Date: 20100115
  Serious: Yes (Death)
  Sender: FDA-Public Use
  Company Number: A03200903054

PATIENT
  Age: 72 Year
  Sex: Male

DRUGS (6)
  1. FLUDARABINE PHOSPHATE [Suspect]
     Indication: CHRONIC LYMPHOCYTIC LEUKAEMIA
  2. MABCAMPATH - (ALEMTUZUMAB) - UNKNOWN - UNIT DOSE : UNKNOWN /  UNKNOWN [Suspect]
     Indication: CHRONIC LYMPHOCYTIC LEUKAEMIA
     Dosage: 30 MG QD / 10 MG QD / 3 MG QD
     Dates: start: 20090203
  3. MABCAMPATH - (ALEMTUZUMAB) - UNKNOWN - UNIT DOSE : UNKNOWN /  UNKNOWN [Suspect]
     Indication: CHRONIC LYMPHOCYTIC LEUKAEMIA
     Dosage: 30 MG QD / 10 MG QD / 3 MG QD
     Dates: start: 20090201
  4. MABCAMPATH - (ALEMTUZUMAB) - UNKNOWN - UNIT DOSE : UNKNOWN /  UNKNOWN [Suspect]
     Indication: CHRONIC LYMPHOCYTIC LEUKAEMIA
     Dosage: 30 MG QD / 10 MG QD / 3 MG QD
     Dates: start: 20090202
  5. LEUKERAN [Concomitant]
  6. CYTOXAN [Concomitant]

REACTIONS (4)
  - CYTOMEGALOVIRUS INFECTION [None]
  - DRUG TOXICITY [None]
  - HEPATIC NECROSIS [None]
  - LEUKOPENIA [None]
